FAERS Safety Report 23963103 (Version 1)
Quarter: 2024Q2

REPORT INFORMATION
  Report Type: Spontaneous
  Country: US (occurrence: None)
  Receive Date: 20240611
  Receipt Date: 20240611
  Transmission Date: 20240716
  Serious: No
  Sender: FDA-Public Use
  Company Number: None

PATIENT
  Sex: Female

DRUGS (4)
  1. OPSUMIT [Suspect]
     Active Substance: MACITENTAN
     Indication: Pulmonary arterial hypertension
     Dosage: FREQUENCY : DAILY;?
     Route: 048
     Dates: start: 202010
  2. LASIX [Concomitant]
     Active Substance: FUROSEMIDE
  3. amoxicilin [Concomitant]
  4. ADEMPAS [Concomitant]

REACTIONS (7)
  - Dizziness exertional [None]
  - Fatigue [None]
  - Dizziness [None]
  - Weight abnormal [None]
  - Fluid retention [None]
  - Pneumonia [None]
  - Pneumonia [None]
